FAERS Safety Report 8777890 (Version 1)
Quarter: 2012Q4

REPORT INFORMATION
  Report Type: 
  Country: ZA (occurrence: ZA)
  Receive Date: 20120911
  Receipt Date: 20120911
  Transmission Date: 20130627
  Serious: Yes (Hospitalization, Other)
  Sender: FDA-Public Use
  Company Number: PHHY2012ZA077886

PATIENT
  Sex: Female

DRUGS (1)
  1. TEGRETOL [Suspect]
     Indication: EPILEPSY
     Dates: start: 1966

REACTIONS (9)
  - Gastric ulcer [Unknown]
  - Schizophrenia [Unknown]
  - Osteoporosis [Not Recovered/Not Resolved]
  - Upper limb fracture [Unknown]
  - Hypertension [Unknown]
  - Mouth ulceration [Unknown]
  - Skin lesion [Unknown]
  - Arthritis [Unknown]
  - Hysterectomy [None]
